FAERS Safety Report 4476389-4 (Version None)
Quarter: 2004Q4

REPORT INFORMATION
  Report Type: 
  Country: None (occurrence: None)
  Receive Date: 20041016
  Receipt Date: 20041006
  Transmission Date: 20050328
  Serious: Yes (Life-Threatening, Hospitalization, Disabling)
  Sender: FDA-Public Use
  Company Number: US-MERCK-0410USA00969

PATIENT
  Age: 47 Year
  Sex: Male

DRUGS (5)
  1. [THERAPY UNSPECIFIED] [Concomitant]
     Route: 065
  2. LIPITOR [Concomitant]
     Route: 065
  3. PLAVIX [Concomitant]
     Route: 065
  4. ALTACE [Concomitant]
     Route: 065
  5. VIOXX [Suspect]
     Indication: ARTHRALGIA
     Route: 048
     Dates: start: 20030701, end: 20040501

REACTIONS (2)
  - CARDIAC DISORDER [None]
  - CHEST PAIN [None]
